FAERS Safety Report 5258839-9 (Version None)
Quarter: 2007Q1

REPORT INFORMATION
  Report Type: 
  Country: None (occurrence: None)
  Receive Date: 20070308
  Receipt Date: 20070307
  Transmission Date: 20070707
  Serious: Yes (Other)
  Sender: FDA-Public Use
  Company Number: US-GLAXOSMITHKLINE-A0642212A

PATIENT
  Age: 48 Year
  Sex: Female

DRUGS (10)
  1. PAXIL CR [Suspect]
     Indication: DEPRESSION
     Dosage: 37.5MG PER DAY
     Route: 048
     Dates: start: 20060116
  2. PLAVIX [Concomitant]
  3. TOPROL-XL [Concomitant]
  4. TRILEPTAL [Concomitant]
  5. TRAZODONE HCL [Concomitant]
  6. CRESTOR [Concomitant]
  7. ACIPHEX [Concomitant]
  8. SUBOXONE [Concomitant]
  9. GLUCOSAMINE + CHONDROITIN [Concomitant]
  10. VITAMIN CAP [Concomitant]

REACTIONS (4)
  - FEELING OF DESPAIR [None]
  - FEELINGS OF WORTHLESSNESS [None]
  - PHARMACEUTICAL PRODUCT COMPLAINT [None]
  - SUICIDAL IDEATION [None]
